FAERS Safety Report 20291137 (Version 5)
Quarter: 2023Q1

REPORT INFORMATION
  Report Type: Spontaneous
  Country: US (occurrence: US)
  Receive Date: 20220104
  Receipt Date: 20230123
  Transmission Date: 20230417
  Serious: Yes (Other)
  Sender: FDA-Public Use
  Company Number: US-PFIZER INC-202101843909

PATIENT
  Age: 58 Year
  Sex: Female

DRUGS (1)
  1. XELJANZ XR [Suspect]
     Active Substance: TOFACITINIB CITRATE
     Indication: Rheumatoid arthritis
     Dosage: 11 MG, 1X/DAY
     Route: 048
     Dates: start: 202109, end: 2022

REACTIONS (13)
  - Rheumatoid arthritis [Unknown]
  - Cerebrovascular accident [Unknown]
  - Herpes zoster [Recovered/Resolved]
  - Pain [Unknown]
  - Scar [Unknown]
  - Blood pressure increased [Unknown]
  - Condition aggravated [Unknown]
  - Balance disorder [Unknown]
  - Musculoskeletal discomfort [Unknown]
  - Condition aggravated [Unknown]
  - Dry mouth [Unknown]
  - Dry eye [Unknown]
  - Urinary tract infection [Unknown]

NARRATIVE: CASE EVENT DATE: 20210101
